FAERS Safety Report 12092912 (Version 13)
Quarter: 2017Q4

REPORT INFORMATION
  Report Type: Report from Study
  Country: CA (occurrence: CA)
  Receive Date: 20160219
  Receipt Date: 20171213
  Transmission Date: 20180320
  Serious: Yes (Other)
  Sender: FDA-Public Use
  Company Number: CA-ROCHE-1713586

PATIENT
  Age: 76 Year
  Sex: Male
  Weight: 126.21 kg

DRUGS (11)
  1. ESBRIET [Suspect]
     Active Substance: PIRFENIDONE
     Route: 048
     Dates: start: 2016
  2. ADVAIR HFA [Concomitant]
     Active Substance: FLUTICASONE PROPIONATE\SALMETEROL XINAFOATE
  3. ROSUVASTATIN. [Concomitant]
     Active Substance: ROSUVASTATIN
  4. SPIRIVA [Concomitant]
     Active Substance: TIOTROPIUM BROMIDE MONOHYDRATE
  5. ESBRIET [Suspect]
     Active Substance: PIRFENIDONE
     Indication: IDIOPATHIC PULMONARY FIBROSIS
     Route: 048
     Dates: start: 20160203
  6. VENTOLIN [Concomitant]
     Active Substance: ALBUTEROL SULFATE
  7. RAMIPRIL. [Concomitant]
     Active Substance: RAMIPRIL
  8. GLICLAZIDE [Concomitant]
     Active Substance: GLICLAZIDE
  9. ESBRIET [Suspect]
     Active Substance: PIRFENIDONE
     Route: 048
     Dates: start: 20160829
  10. FERROGLUKONAT [Concomitant]
  11. RABEPRAZOLE [Concomitant]
     Active Substance: RABEPRAZOLE

REACTIONS (20)
  - Productive cough [Unknown]
  - Diarrhoea [Unknown]
  - Tooth infection [Not Recovered/Not Resolved]
  - Abdominal discomfort [Unknown]
  - Animal scratch [Recovered/Resolved]
  - Hypotension [Unknown]
  - Constipation [Unknown]
  - Abdominal pain upper [Unknown]
  - Decreased appetite [Not Recovered/Not Resolved]
  - Hyperkeratosis [Unknown]
  - Breath sounds abnormal [Unknown]
  - Dysgeusia [Unknown]
  - Dizziness [Unknown]
  - Throat irritation [Unknown]
  - Fatigue [Unknown]
  - Pulmonary function test abnormal [Unknown]
  - Cough [Unknown]
  - Blood glucose increased [Unknown]
  - Tremor [Unknown]
  - Disturbance in attention [Unknown]

NARRATIVE: CASE EVENT DATE: 20160217
